FAERS Safety Report 9445980 (Version 1)
Quarter: 2013Q3

REPORT INFORMATION
  Report Type: Spontaneous
  Country: FR (occurrence: FR)
  Receive Date: 20130807
  Receipt Date: 20130807
  Transmission Date: 20140515
  Serious: Yes (Other)
  Sender: FDA-Public Use
  Company Number: FR-MYLANLABS-2013S1016503

PATIENT
  Age: 64 Year
  Sex: Male

DRUGS (3)
  1. CISPLATINE [Suspect]
     Indication: OROPHARYNGEAL CANCER
     Route: 042
     Dates: start: 20130225, end: 20130524
  2. FLUOROURACILE [Suspect]
     Indication: OROPHARYNGEAL CANCER
     Route: 042
     Dates: start: 20130225, end: 20130502
  3. ERBITUX [Suspect]
     Indication: OROPHARYNGEAL CANCER
     Route: 042
     Dates: start: 20130225

REACTIONS (1)
  - Visual acuity reduced [Not Recovered/Not Resolved]
